FAERS Safety Report 13267032 (Version 1)
Quarter: 2017Q1

REPORT INFORMATION
  Report Type: Spontaneous
  Country: US (occurrence: US)
  Receive Date: 20170224
  Receipt Date: 20170224
  Transmission Date: 20170428
  Serious: No
  Sender: FDA-Public Use
  Company Number: US-ASTRAZENECA-2017SE16948

PATIENT
  Sex: Female

DRUGS (5)
  1. CRESTOR [Suspect]
     Active Substance: ROSUVASTATIN CALCIUM
     Dosage: DAILY
     Route: 048
  2. HUMALOG MIX [Concomitant]
     Active Substance: INSULIN LISPRO
     Dosage: UNKNOWN
     Route: 065
  3. BYDUREON [Suspect]
     Active Substance: EXENATIDE
     Indication: GLYCOSYLATED HAEMOGLOBIN
     Dosage: DOSING UNKNOWN
     Route: 058
     Dates: start: 20161223
  4. LOSARTAN. [Concomitant]
     Active Substance: LOSARTAN
     Dosage: DAILY
     Route: 048
  5. LOVAZA [Concomitant]
     Active Substance: OMEGA-3-ACID ETHYL ESTERS
     Dosage: TWO TIMES A DAY
     Route: 048

REACTIONS (3)
  - Product use issue [Not Recovered/Not Resolved]
  - Injection site nodule [Recovering/Resolving]
  - Intentional product misuse [Not Recovered/Not Resolved]
